FAERS Safety Report 25114793 (Version 1)
Quarter: 2025Q1

REPORT INFORMATION
  Report Type: Spontaneous
  Country: US (occurrence: US)
  Receive Date: 20250324
  Receipt Date: 20250324
  Transmission Date: 20250408
  Serious: No
  Sender: MEITHEAL PHARMACEUTICALS
  Company Number: US-MEITHEAL-2025MPSPO00072

PATIENT
  Sex: Female

DRUGS (2)
  1. GANIRELIX [Suspect]
     Active Substance: GANIRELIX
     Indication: Product used for unknown indication
     Route: 065
  2. GANIRELIX [Suspect]
     Active Substance: GANIRELIX

REACTIONS (2)
  - Product dose omission issue [Unknown]
  - Product packaging quantity issue [Unknown]
